FAERS Safety Report 13247997 (Version 1)
Quarter: 2017Q1

REPORT INFORMATION
  Report Type: Spontaneous
  Country: GB (occurrence: GB)
  Receive Date: 20170217
  Receipt Date: 20170217
  Transmission Date: 20170428
  Serious: Yes (Hospitalization)
  Sender: FDA-Public Use
  Company Number: GB-MYLANLABS-2017M1010013

PATIENT

DRUGS (6)
  1. SUDOCREM [Concomitant]
     Dosage: AS DIRECTED.
     Dates: start: 20160224
  2. FORTISIP [Concomitant]
     Active Substance: CARBOHYDRATES\FATTY ACIDS\MINERALS\PROTEIN\VITAMINS
     Dates: start: 20160224
  3. PARACETAMOL [Concomitant]
     Active Substance: ACETAMINOPHEN
     Indication: PAIN
     Dosage: 4 TIMES/DAY.
     Dates: start: 20160428
  4. BACLOFEN. [Suspect]
     Active Substance: BACLOFEN
     Indication: DECUBITUS ULCER
     Dosage: TAKEN 5 DOSES.
     Dates: start: 20170124
  5. ADCAL                              /07357001/ [Concomitant]
     Dates: start: 20160512
  6. ZEROBASE                           /00103901/ [Concomitant]
     Dosage: AS DIRECTED.
     Dates: start: 20160224

REACTIONS (3)
  - Pneumonia [Unknown]
  - Hypernatraemia [Recovered/Resolved]
  - Somnolence [Unknown]

NARRATIVE: CASE EVENT DATE: 20170124
